FAERS Safety Report 18769113 (Version 6)
Quarter: 2022Q2

REPORT INFORMATION
  Report Type: Spontaneous
  Country: US (occurrence: US)
  Receive Date: 20210121
  Receipt Date: 20220401
  Transmission Date: 20220720
  Serious: No
  Sender: FDA-Public Use
  Company Number: US-PFIZER INC-2021030594

PATIENT
  Age: 13 Year
  Sex: Female
  Weight: 45.36 kg

DRUGS (1)
  1. GENOTROPIN [Suspect]
     Active Substance: SOMATROPIN
     Indication: Turner^s syndrome
     Dosage: UNK, 1X/DAY [206 ONCE DAILY INJECTION]

REACTIONS (2)
  - Drug dose omission by device [Unknown]
  - Device breakage [Unknown]
